FAERS Safety Report 25098985 (Version 2)
Quarter: 2025Q3

REPORT INFORMATION
  Report Type: Report from Study
  Country: US (occurrence: US)
  Receive Date: 20250320
  Receipt Date: 20250803
  Transmission Date: 20251020
  Serious: Yes (Hospitalization, Other)
  Sender: ALEXION PHARMACEUTICALS
  Company Number: US-AstraZeneca-CH-00828132A

PATIENT

DRUGS (1)
  1. ULTOMIRIS [Suspect]
     Active Substance: RAVULIZUMAB-CWVZ
     Indication: Myasthenia gravis
     Route: 065

REACTIONS (7)
  - Myasthenia gravis [Unknown]
  - Pneumonia [Unknown]
  - Fall [Unknown]
  - Oedema peripheral [Unknown]
  - Carbon dioxide increased [Unknown]
  - Abdominal distension [Unknown]
  - Poor quality sleep [Unknown]
